FAERS Safety Report 18484834 (Version 1)
Quarter: 2020Q4

REPORT INFORMATION
  Report Type: Spontaneous
  Country: US (occurrence: US)
  Receive Date: 20201110
  Receipt Date: 20201110
  Transmission Date: 20210114
  Serious: No
  Sender: FDA-Public Use
  Company Number: US-VIIV HEALTHCARE LIMITED-US2020AMR222093

PATIENT
  Sex: Male

DRUGS (1)
  1. SELZENTRY [Suspect]
     Active Substance: MARAVIROC
     Indication: METASTATIC GASTRIC CANCER
     Dosage: 300 MG

REACTIONS (2)
  - Off label use [Unknown]
  - Product use in unapproved indication [Unknown]
